FAERS Safety Report 6120545-6 (Version None)
Quarter: 2009Q1

REPORT INFORMATION
  Report Type: 
  Country: None (occurrence: None)
  Receive Date: 20090317
  Receipt Date: 20090309
  Transmission Date: 20090719
  Serious: Yes (Hospitalization)
  Sender: FDA-Public Use
  Company Number: US-WYE-H08124809

PATIENT
  Sex: Female
  Weight: 81.72 kg

DRUGS (1)
  1. PRISTIQ [Suspect]
     Indication: DEPRESSION
     Dosage: UNKNOWN
     Route: 048
     Dates: start: 20090205

REACTIONS (4)
  - COGNITIVE DISORDER [None]
  - FEELING OF BODY TEMPERATURE CHANGE [None]
  - HALLUCINATION [None]
  - VOMITING [None]
